FAERS Safety Report 8052060-7 (Version None)
Quarter: 2012Q1

REPORT INFORMATION
  Report Type: 
  Country: None (occurrence: None)
  Receive Date: 20120118
  Receipt Date: 20120106
  Transmission Date: 20120608
  Serious: Yes (Hospitalization, Other)
  Sender: FDA-Public Use
  Company Number: US-ELI_LILLY_AND_COMPANY-US201111003317

PATIENT
  Sex: Female

DRUGS (17)
  1. FORTEO [Suspect]
     Indication: OSTEOPOROSIS
     Dosage: 20 UG, QD
     Dates: start: 20110818
  2. CALCIUM [Concomitant]
  3. VITAMIN C [Concomitant]
  4. MULTI-VITAMIN [Concomitant]
  5. JANUVIA [Concomitant]
  6. LANTUS [Concomitant]
  7. PRILOSEC [Concomitant]
  8. OXYCONTIN [Concomitant]
     Indication: PAIN
     Dosage: UNK, PRN
  9. PREDNISONE [Concomitant]
  10. FORTEO [Suspect]
     Dosage: 20 UG, QD
  11. ANALGESICS [Concomitant]
     Indication: PAIN
  12. HYZAAR [Concomitant]
  13. ASPIRIN [Concomitant]
  14. PERCOCET [Concomitant]
     Indication: PAIN
     Dosage: UNK, PRN
  15. MORPHINE [Concomitant]
  16. IRON [Concomitant]
  17. ZOCOR [Concomitant]

REACTIONS (6)
  - BACK DISORDER [None]
  - OVERDOSE [None]
  - BREAST PAIN [None]
  - DIZZINESS [None]
  - FEELING ABNORMAL [None]
  - NAUSEA [None]
